FAERS Safety Report 22091939 (Version 3)
Quarter: 2023Q2

REPORT INFORMATION
  Report Type: Spontaneous
  Country: US (occurrence: US)
  Receive Date: 20230314
  Receipt Date: 20230418
  Transmission Date: 20230722
  Serious: No
  Sender: FDA-Public Use
  Company Number: US-GSK-US2023AMR035746

PATIENT
  Sex: Female

DRUGS (3)
  1. SUMATRIPTAN SUCCINATE [Suspect]
     Active Substance: SUMATRIPTAN SUCCINATE
     Indication: Cluster headache
     Dosage: 4 MG, 0.5MLX2
     Dates: start: 202211
  2. SUMATRIPTAN SUCCINATE [Suspect]
     Active Substance: SUMATRIPTAN SUCCINATE
  3. RIZATRIPTAN [Suspect]
     Active Substance: RIZATRIPTAN
     Indication: Product used for unknown indication
     Dosage: 4 MG

REACTIONS (6)
  - Somnolence [Unknown]
  - Tremor [Unknown]
  - Injection site bruising [Unknown]
  - Product dose omission issue [Unknown]
  - Product substitution issue [Unknown]
  - Product complaint [Unknown]
